FAERS Safety Report 7267289-5 (Version None)
Quarter: 2011Q1

REPORT INFORMATION
  Report Type: 
  Country: None (occurrence: None)
  Receive Date: 20110121
  Receipt Date: 20110113
  Transmission Date: 20110831
  Serious: Yes (Hospitalization)
  Sender: FDA-Public Use
  Company Number: WAES 1012USA02751

PATIENT
  Age: 72 Year
  Sex: Male

DRUGS (11)
  1. CLEXANE 9ENOXAPARIN SODIUM) [Concomitant]
  2. PANTOPRAZOLE [Concomitant]
  3. KEIMAX [Concomitant]
  4. ASPIRIN [Concomitant]
  5. TAB DEXAMETHASONE [Suspect]
     Indication: MULTIPLE MYELOMA
     Dosage: 20 MG, PO
     Route: 048
     Dates: start: 20101201, end: 20101216
  6. NOVAMIN (AMIKACIN SULFATE) [Concomitant]
  7. TORSEMIDE [Concomitant]
  8. BORTEZOMIB [Suspect]
     Indication: MULTIPLE MYELOMA
     Dosage: 1.95 MG/M[2]. IV
     Route: 042
     Dates: start: 20091102, end: 20101216
  9. ACETAMINOPHEN [Concomitant]
  10. CAP VORINOSTAT [Suspect]
     Indication: MULTIPLE MYELOMA
     Dosage: 200 MG/DAILY, PO
     Route: 048
     Dates: start: 20091102, end: 20101216
  11. ASS 100 [Concomitant]

REACTIONS (9)
  - SIGMOIDITIS [None]
  - BENIGN PROSTATIC HYPERPLASIA [None]
  - INSOMNIA [None]
  - CARDIAC FAILURE [None]
  - MULTIPLE MYELOMA [None]
  - NEOPLASM MALIGNANT [None]
  - TREATMENT NONCOMPLIANCE [None]
  - HYPERURICAEMIA [None]
  - ABDOMINAL PAIN LOWER [None]
